FAERS Safety Report 8152855-5 (Version None)
Quarter: 2012Q1

REPORT INFORMATION
  Report Type: 
  Country: None (occurrence: None)
  Receive Date: 20120221
  Receipt Date: 20120210
  Transmission Date: 20120608
  Serious: No
  Sender: FDA-Public Use
  Company Number: US-B.I. PHARMACEUTICALS,INC./RIDGEFIELD-2012-BP-02669BP

PATIENT
  Age: 79 Year
  Sex: Male

DRUGS (11)
  1. PRADAXA [Suspect]
     Indication: ATRIAL FIBRILLATION
     Dosage: 300 MG
     Route: 048
     Dates: start: 20120127
  2. POTASSIUM CHLORIDE [Concomitant]
  3. VITAMIN B6 [Concomitant]
  4. MS OXIDE [Concomitant]
  5. SPIRONOLACTONE [Concomitant]
  6. METOPROLOL TARTRATE [Concomitant]
  7. LOSARTAN POTASSIUM [Concomitant]
  8. ASPIRIN [Concomitant]
  9. GLYBURIDE [Concomitant]
     Indication: TYPE 2 DIABETES MELLITUS
  10. XALATAN [Concomitant]
  11. FUROSEMIDE [Concomitant]

REACTIONS (2)
  - DECREASED APPETITE [None]
  - DYSPEPSIA [None]
